FAERS Safety Report 18015698 (Version 3)
Quarter: 2021Q2

REPORT INFORMATION
  Report Type: Spontaneous
  Country: SK (occurrence: SK)
  Receive Date: 20200713
  Receipt Date: 20210629
  Transmission Date: 20210717
  Serious: Yes (Death, Hospitalization, Other)
  Sender: FDA-Public Use
  Company Number: SK-TEVA-2020-SK-1799711

PATIENT
  Age: 41 Year
  Sex: Male

DRUGS (3)
  1. MYCOPHENOLATE MOFETIL. [Suspect]
     Active Substance: MYCOPHENOLATE MOFETIL
     Indication: CHRONIC GRAFT VERSUS HOST DISEASE
     Route: 065
  2. CICLOSPORIN [Suspect]
     Active Substance: CYCLOSPORINE
     Indication: CHRONIC GRAFT VERSUS HOST DISEASE
     Route: 065
  3. METHYLPREDNISONE [Suspect]
     Active Substance: METHYLPREDNISOLONE
     Indication: CHRONIC GRAFT VERSUS HOST DISEASE
     Route: 065

REACTIONS (8)
  - Respiratory tract infection [Fatal]
  - Bronchopulmonary aspergillosis [Fatal]
  - Myopathy [Fatal]
  - Interstitial lung disease [Fatal]
  - Pulmonary fibrosis [Fatal]
  - Hypoxia [Unknown]
  - Blood pressure decreased [Unknown]
  - Psychotic disorder [Fatal]

NARRATIVE: CASE EVENT DATE: 2017
